FAERS Safety Report 10686750 (Version 3)
Quarter: 2015Q1

REPORT INFORMATION
  Report Type: Spontaneous
  Country: IT (occurrence: IT)
  Receive Date: 20150101
  Receipt Date: 20150217
  Transmission Date: 20150720
  Serious: Yes (Other)
  Sender: FDA-Public Use
  Company Number: PHHY2014IT168718

PATIENT
  Sex: Female

DRUGS (3)
  1. PACLITAXEL SANDOZ [Suspect]
     Active Substance: PACLITAXEL
     Indication: BREAST CANCER
     Dosage: 124 MG, UNK
     Route: 042
     Dates: start: 20140513, end: 20141103
  2. HERCEPTIN [Concomitant]
     Active Substance: TRASTUZUMAB
     Indication: BREAST CANCER
     Dosage: 124 MG, UNK
     Route: 042
     Dates: start: 20140512, end: 20141209
  3. XGEVA [Concomitant]
     Active Substance: DENOSUMAB
     Indication: PRODUCT USED FOR UNKNOWN INDICATION
     Dosage: 120 MG, UNK
     Route: 058
     Dates: start: 20140616, end: 20141117

REACTIONS (1)
  - Lymphangitis [Recovered/Resolved]

NARRATIVE: CASE EVENT DATE: 20141110
